FAERS Safety Report 7495936-1 (Version None)
Quarter: 2011Q2

REPORT INFORMATION
  Report Type: 
  Country: None (occurrence: None)
  Receive Date: 20110523
  Receipt Date: 20110502
  Transmission Date: 20111010
  Serious: Yes (Life-Threatening, Hospitalization, Other)
  Sender: FDA-Public Use
  Company Number: SD-BAXTER-2011BH016537

PATIENT
  Age: 56 Year
  Sex: Male

DRUGS (3)
  1. DIANEAL [Suspect]
     Indication: PERITONEAL DIALYSIS
     Route: 033
     Dates: start: 20101215
  2. DIANEAL [Suspect]
     Route: 033
  3. DIANEAL [Suspect]
     Route: 033
     Dates: start: 20080209

REACTIONS (7)
  - PERITONITIS BACTERIAL [None]
  - DIARRHOEA [None]
  - CATHETER SITE INFECTION [None]
  - PYREXIA [None]
  - PERITONEAL DIALYSIS COMPLICATION [None]
  - GASTRITIS [None]
  - STAPHYLOCOCCAL INFECTION [None]
